FAERS Safety Report 23414246 (Version 1)
Quarter: 2024Q1

REPORT INFORMATION
  Report Type: Spontaneous
  Country: CN (occurrence: CN)
  Receive Date: 20240118
  Receipt Date: 20240118
  Transmission Date: 20240410
  Serious: Yes (Life-Threatening)
  Sender: FDA-Public Use
  Company Number: CN-SHANGHAI JUNSHI BIOSCIENCES CO., LTD.-CN2024009030

PATIENT

DRUGS (1)
  1. TORIPALIMAB [Suspect]
     Active Substance: TORIPALIMAB
     Indication: Pancreatic carcinoma
     Dosage: 240 MG, ONCE EVERY 14 DAYS
     Route: 042
     Dates: start: 20231109, end: 20231109

REACTIONS (4)
  - Rash [Not Recovered/Not Resolved]
  - Off label use [Unknown]
  - Medication error [Unknown]
  - Medication error [Unknown]

NARRATIVE: CASE EVENT DATE: 20231109
